FAERS Safety Report 17650054 (Version 4)
Quarter: 2021Q2

REPORT INFORMATION
  Report Type: Spontaneous
  Country: US (occurrence: US)
  Receive Date: 20200409
  Receipt Date: 20210504
  Transmission Date: 20210716
  Serious: Yes (Other)
  Sender: FDA-Public Use
  Company Number: US-PFIZER INC-2020144397

PATIENT
  Age: 81 Year
  Sex: Female

DRUGS (1)
  1. LYRICA [Suspect]
     Active Substance: PREGABALIN
     Indication: OSTEOARTHRITIS
     Dosage: 75 MG, 2X/DAY(1 CAPSULES TWICE DAY)
     Route: 048

REACTIONS (5)
  - Off label use [Unknown]
  - Foot deformity [Unknown]
  - Peripheral swelling [Unknown]
  - Gait inability [Unknown]
  - Arthritis [Unknown]
